FAERS Safety Report 7554627-9 (Version None)
Quarter: 2011Q2

REPORT INFORMATION
  Report Type: 
  Country: None (occurrence: None)
  Receive Date: 20110617
  Receipt Date: 20110609
  Transmission Date: 20111010
  Serious: Yes (Other)
  Sender: FDA-Public Use
  Company Number: US-MYLANLABS-2011S1012072

PATIENT
  Age: 77 Year
  Sex: Male

DRUGS (5)
  1. SIMVASTATIN [Concomitant]
  2. LISINOPRIL [Concomitant]
  3. FINASTERIDE [Suspect]
     Indication: BENIGN PROSTATIC HYPERPLASIA
     Dates: start: 20110601
  4. TAMSULOSIN HCL [Suspect]
     Indication: BENIGN PROSTATIC HYPERPLASIA
  5. OMEPRAZOLE [Concomitant]

REACTIONS (3)
  - POTENTIATING DRUG INTERACTION [None]
  - DYSURIA [None]
  - DIZZINESS [None]
